FAERS Safety Report 9502011 (Version 3)
Quarter: 2013Q3

REPORT INFORMATION
  Report Type: Spontaneous
  Country: GB (occurrence: GB)
  Receive Date: 20130905
  Receipt Date: 20130925
  Transmission Date: 20140515
  Serious: Yes (Hospitalization, Other)
  Sender: FDA-Public Use
  Company Number: GB-WATSON-2013-15654

PATIENT
  Age: 58 Year
  Sex: Female

DRUGS (8)
  1. ALLOPURINOL (UNKNOWN) [Suspect]
     Indication: PRODUCT USED FOR UNKNOWN INDICATION
     Dosage: 300 MG, UNKNOWN
     Route: 065
     Dates: end: 20130807
  2. VELCADE [Suspect]
     Indication: PLASMA CELL MYELOMA
     Dosage: 1.6 MG/M2, UNK
     Route: 065
     Dates: start: 20130712, end: 20130802
  3. CYCLOPHOSPHAMIDE [Concomitant]
     Indication: PLASMA CELL MYELOMA
     Dosage: 500 MG, UNKNOWN
     Route: 065
  4. DEXAMETHASONE                      /00016002/ [Concomitant]
     Indication: PLASMA CELL MYELOMA
     Dosage: 20 MG, UNKNOWN
     Route: 065
  5. AMITRIPTYLINE [Concomitant]
     Indication: DEPRESSION
     Dosage: UNK
     Route: 065
  6. ACICLOVIR [Concomitant]
     Indication: CHEMOTHERAPY
     Dosage: UNK
     Route: 065
  7. CO-TRIMOXAZOLE [Concomitant]
     Indication: CHEMOTHERAPY
     Dosage: 960 MG, UNKNOWN
     Route: 065
  8. OMEPRAZOLE [Concomitant]
     Indication: CHEMOTHERAPY
     Dosage: 20 MG, UNKNOWN
     Route: 065

REACTIONS (3)
  - Rash [Recovering/Resolving]
  - Hepatic function abnormal [Unknown]
  - Pyrexia [Unknown]
